FAERS Safety Report 25354705 (Version 1)
Quarter: 2025Q2

REPORT INFORMATION
  Report Type: Spontaneous
  Country: US (occurrence: US)
  Receive Date: 20250524
  Receipt Date: 20250524
  Transmission Date: 20250716
  Serious: No
  Sender: STRIDES
  Company Number: US-STRIDES ARCOLAB LIMITED-2024SP013245

PATIENT
  Sex: Female

DRUGS (3)
  1. MINOCYCLINE [Suspect]
     Active Substance: MINOCYCLINE HYDROCHLORIDE
     Indication: Granuloma annulare
     Route: 065
  2. DAPSONE [Concomitant]
     Active Substance: DAPSONE
     Indication: Granuloma annulare
     Route: 065
  3. HYDROXYCHLOROQUINE [Concomitant]
     Active Substance: HYDROXYCHLOROQUINE
     Indication: Granuloma annulare
     Route: 065

REACTIONS (1)
  - Off label use [Unknown]
